FAERS Safety Report 14663566 (Version 1)
Quarter: 2018Q1

REPORT INFORMATION
  Report Type: Spontaneous
  Country: US (occurrence: US)
  Receive Date: 20180321
  Receipt Date: 20180321
  Transmission Date: 20180509
  Serious: No
  Sender: FDA-Public Use
  Company Number: US-PFIZER INC-2018118415

PATIENT
  Age: 56 Year
  Sex: Male
  Weight: 72.7 kg

DRUGS (1)
  1. DAPTOMYCIN. [Suspect]
     Active Substance: DAPTOMYCIN
     Indication: INFECTION
     Dosage: 560MG ONCE DAILY INTRAVENOUS PUSH
     Route: 040

REACTIONS (2)
  - Micturition urgency [Unknown]
  - Chills [Unknown]
